FAERS Safety Report 5310365-4 (Version None)
Quarter: 2007Q2

REPORT INFORMATION
  Report Type: 
  Country: None (occurrence: None)
  Receive Date: 20070427
  Receipt Date: 20070412
  Transmission Date: 20071010
  Serious: Yes (Other)
  Sender: FDA-Public Use
  Company Number: CA-GENENTECH-238847

PATIENT
  Sex: Female

DRUGS (6)
  1. HERCEPTIN [Suspect]
     Indication: BREAST CANCER METASTATIC
     Dosage: 270 MG, Q3W
     Route: 042
     Dates: start: 20060925
  2. HERCEPTIN [Suspect]
     Dosage: 220 MG, UNK
     Dates: start: 20070312
  3. TAXOL [Suspect]
     Indication: BREAST CANCER METASTATIC
     Dosage: UNK, Q3W
     Route: 042
     Dates: end: 20061015
  4. NORVASC [Concomitant]
     Indication: DRUG USE FOR UNKNOWN INDICATION
     Dates: start: 19980115, end: 20061026
  5. DEXAMETHASONE [Concomitant]
     Indication: DRUG USE FOR UNKNOWN INDICATION
     Dates: start: 20060920, end: 20061026
  6. PRAVASTATIN [Concomitant]
     Indication: DRUG USE FOR UNKNOWN INDICATION
     Dates: start: 19970515, end: 20061026

REACTIONS (1)
  - HEPATITIS B [None]
